FAERS Safety Report 7722945-7 (Version None)
Quarter: 2011Q3

REPORT INFORMATION
  Report Type: 
  Country: None (occurrence: None)
  Receive Date: 20110901
  Receipt Date: 20110822
  Transmission Date: 20111222
  Serious: Yes (Hospitalization)
  Sender: FDA-Public Use
  Company Number: PHHO2011DE14318

PATIENT
  Sex: Female

DRUGS (2)
  1. ZOLEDRONIC [Suspect]
     Indication: BREAST CANCER
     Dosage: 4 MG, UNK
     Route: 042
  2. ARIMIDEX [Suspect]
     Indication: BREAST CANCER
     Dosage: 1 MG, UNK
     Route: 048

REACTIONS (1)
  - GASTRITIS [None]
